FAERS Safety Report 6213213-3 (Version None)
Quarter: 2009Q2

REPORT INFORMATION
  Report Type: 
  Country: None (occurrence: None)
  Receive Date: 20090602
  Receipt Date: 20090602
  Transmission Date: 20091009
  Serious: Yes (Hospitalization)
  Sender: FDA-Public Use
  Company Number: None

PATIENT
  Age: 67 Year
  Sex: Female
  Weight: 87.9978 kg

DRUGS (13)
  1. SORAFENIB [Suspect]
     Indication: NERVOUS SYSTEM DISORDER
     Dosage: 400MGX2/DAILY ORAL
     Route: 048
     Dates: start: 20090510, end: 20090521
  2. TEMODAR [Suspect]
     Indication: NERVOUS SYSTEM DISORDER
     Dosage: 75MG/M 2/DAILY ORAL
     Route: 048
     Dates: start: 20090510
  3. CIPROFLOXACIN [Concomitant]
  4. BENADRYL [Concomitant]
  5. XALATAN [Concomitant]
  6. BRIMONIDINE TARTRATE [Concomitant]
  7. NEXIUM [Concomitant]
  8. KEPPRA [Concomitant]
  9. DECADRON [Concomitant]
  10. TRIAMTERENE [Concomitant]
  11. SYNTHROID [Concomitant]
  12. NORVASC [Concomitant]
  13. SENNA [Concomitant]

REACTIONS (8)
  - BLOOD ALKALINE PHOSPHATASE ABNORMAL [None]
  - BLOOD BILIRUBIN ABNORMAL [None]
  - BLOOD PHOSPHORUS ABNORMAL [None]
  - BLOOD POTASSIUM ABNORMAL [None]
  - HYPERGLYCAEMIA [None]
  - HYPONATRAEMIA [None]
  - HYPOPHOSPHATAEMIA [None]
  - STEVENS-JOHNSON SYNDROME [None]
